FAERS Safety Report 12578616 (Version 2)
Quarter: 2016Q4

REPORT INFORMATION
  Report Type: Spontaneous
  Country: US (occurrence: US)
  Receive Date: 20160721
  Receipt Date: 20161228
  Transmission Date: 20170207
  Serious: No
  Sender: FDA-Public Use
  Company Number: US-PFIZER INC-2016318345

PATIENT
  Age: 57 Year
  Sex: Female

DRUGS (2)
  1. IBRANCE [Suspect]
     Active Substance: PALBOCICLIB
     Indication: NEOPLASM MALIGNANT
     Dosage: 125 MG, CYCLIC(21 DAYS FOLLOWED BY 7 DAYS REST)
     Route: 048
     Dates: start: 201606
  2. ANASTROZOLE. [Suspect]
     Active Substance: ANASTROZOLE
     Dosage: UNK

REACTIONS (7)
  - Product use issue [Unknown]
  - Skin exfoliation [Recovered/Resolved]
  - Rash [Unknown]
  - Platelet count decreased [Unknown]
  - Gastrooesophageal reflux disease [Recovered/Resolved]
  - White blood cell count decreased [Unknown]
  - Hyperaesthesia [Unknown]

NARRATIVE: CASE EVENT DATE: 2016
